FAERS Safety Report 12748473 (Version 1)
Quarter: 2016Q3

REPORT INFORMATION
  Report Type: Spontaneous
  Country: IT (occurrence: IT)
  Receive Date: 20160915
  Receipt Date: 20160915
  Transmission Date: 20161109
  Serious: Yes (Hospitalization)
  Sender: FDA-Public Use
  Company Number: IT-FRESENIUS KABI-FK201606403

PATIENT
  Age: 32 Year
  Sex: Male

DRUGS (5)
  1. PARACETAMOL [Concomitant]
     Active Substance: ACETAMINOPHEN
  2. LEVOFLOXACIN KABI 5 MG / ML [Suspect]
     Active Substance: LEVOFLOXACIN
     Indication: LUNG INFECTION
     Route: 041
     Dates: start: 20160812, end: 20160817
  3. SOLDESAM [Concomitant]
     Active Substance: DEXAMETHASONE
  4. TARGOSID [Suspect]
     Active Substance: TEICOPLANIN
     Indication: LUNG INFECTION
     Route: 041
     Dates: start: 20160812, end: 20160817
  5. MINIRIN [Concomitant]
     Active Substance: DESMOPRESSIN ACETATE

REACTIONS (1)
  - Acute generalised exanthematous pustulosis [Recovered/Resolved]

NARRATIVE: CASE EVENT DATE: 20160817
